FAERS Safety Report 5292184-0 (Version None)
Quarter: 2007Q2

REPORT INFORMATION
  Report Type: 
  Country: None (occurrence: None)
  Receive Date: 20070410
  Receipt Date: 20070409
  Transmission Date: 20071010
  Serious: Yes (Other)
  Sender: FDA-Public Use
  Company Number: BR-GLAXOSMITHKLINE-A0646512A

PATIENT
  Age: 61 Year
  Sex: Female
  Weight: 65 kg

DRUGS (1)
  1. NIQUITIN [Suspect]
     Dosage: 14MG PER DAY
     Route: 062

REACTIONS (3)
  - DYSPNOEA [None]
  - INTENTIONAL DRUG MISUSE [None]
  - SYNCOPE [None]
